FAERS Safety Report 9265132 (Version 1)
Quarter: 2013Q2

REPORT INFORMATION
  Report Type: Spontaneous
  Country: US (occurrence: None)
  Receive Date: 20130430
  Receipt Date: 20130430
  Transmission Date: 20140414
  Serious: Yes (Hospitalization)
  Sender: FDA-Public Use
  Company Number: None

PATIENT
  Age: 69 Year
  Sex: Male

DRUGS (1)
  1. TRAMADOL [Suspect]
     Indication: PAIN
     Route: 048
     Dates: start: 20130426, end: 20130426

REACTIONS (3)
  - Hypotension [None]
  - Unresponsive to stimuli [None]
  - Syncope [None]
